FAERS Safety Report 4321730-6 (Version None)
Quarter: 2004Q1

REPORT INFORMATION
  Report Type: 
  Country: None (occurrence: None)
  Receive Date: 20040322
  Receipt Date: 20031104
  Transmission Date: 20041129
  Serious: No
  Sender: FDA-Public Use
  Company Number: US-BRISTOL-MYERS SQUIBB COMPANY-12445003

PATIENT
  Age: 80 Year
  Sex: Female
  Weight: 57 kg

DRUGS (9)
  1. VAGISTAT-1 [Suspect]
     Indication: FUNGAL INFECTION
     Route: 067
     Dates: start: 20031103, end: 20031103
  2. HYZAAR [Concomitant]
  3. LESCOL [Concomitant]
  4. SINGULAIR [Concomitant]
  5. ZYRTEC [Concomitant]
  6. PREDNISONE [Concomitant]
  7. ZELNORM [Concomitant]
  8. ATROVENT [Concomitant]
  9. QVAR 40 [Concomitant]
     Route: 055

REACTIONS (1)
  - PRURITUS [None]
